FAERS Safety Report 4715734-9 (Version None)
Quarter: 2005Q2

REPORT INFORMATION
  Report Type: 
  Country: None (occurrence: None)
  Receive Date: 20050629
  Receipt Date: 20050322
  Transmission Date: 20051028
  Serious: No
  Sender: FDA-Public Use
  Company Number: SP00416

PATIENT
  Age: 88 Year
  Sex: Male

DRUGS (2)
  1. XIFAXAN [Suspect]
     Indication: ABDOMINAL PAIN UPPER
     Dosage: 200MG/TID, ORAL
     Route: 048
     Dates: start: 20050317, end: 20050321
  2. BLOOD PRESSURE MEDICATION [Concomitant]

REACTIONS (1)
  - DIARRHOEA [None]
